FAERS Safety Report 5306663-0 (Version None)
Quarter: 2007Q2

REPORT INFORMATION
  Report Type: 
  Country: None (occurrence: None)
  Receive Date: 20070424
  Receipt Date: 20070412
  Transmission Date: 20071010
  Serious: Yes (Other)
  Sender: FDA-Public Use
  Company Number: NO-PFIZER INC-2007030207

PATIENT
  Sex: Male

DRUGS (7)
  1. VARENICLINE [Suspect]
     Indication: SMOKING CESSATION THERAPY
     Route: 048
     Dates: start: 20070125, end: 20070413
  2. KALETRA [Concomitant]
     Indication: HIV TEST POSITIVE
  3. COMBIVIR [Concomitant]
     Indication: HIV TEST POSITIVE
  4. ZANTAC [Concomitant]
     Route: 048
  5. ATROVENT [Concomitant]
     Route: 055
  6. BRICANYL [Concomitant]
     Route: 055
  7. OXIS [Concomitant]
     Route: 055

REACTIONS (12)
  - ABDOMINAL DISTENSION [None]
  - BURNING SENSATION [None]
  - CHILLS [None]
  - CHROMATURIA [None]
  - DYSPNOEA [None]
  - ERYTHEMA [None]
  - FLATULENCE [None]
  - HEART RATE INCREASED [None]
  - POLLAKIURIA [None]
  - PROSTATIC DISORDER [None]
  - SWELLING FACE [None]
  - URINE ODOUR ABNORMAL [None]
